FAERS Safety Report 25910075 (Version 1)
Quarter: 2025Q4

REPORT INFORMATION
  Report Type: Report from Study
  Country: IL (occurrence: IL)
  Receive Date: 20251012
  Receipt Date: 20251012
  Transmission Date: 20260118
  Serious: Yes (Other)
  Sender: SANOFI AVENTIS
  Company Number: IL-SA-2025SA302602

PATIENT
  Age: 84 Year
  Sex: Female

DRUGS (1)
  1. IMIGLUCERASE [Suspect]
     Active Substance: IMIGLUCERASE
     Indication: Gaucher^s disease
     Dosage: 1200 (UNITS UNSPECIFIED), QOW
     Route: 041
     Dates: start: 20141022

REACTIONS (1)
  - Metastatic carcinoma of the bladder [Not Recovered/Not Resolved]

NARRATIVE: CASE EVENT DATE: 20251005
